FAERS Safety Report 6021122-8 (Version None)
Quarter: 2008Q4

REPORT INFORMATION
  Report Type: 
  Country: None (occurrence: None)
  Receive Date: 20081229
  Receipt Date: 20081216
  Transmission Date: 20090506
  Serious: Yes (Other)
  Sender: FDA-Public Use
  Company Number: US-PFIZER INC-2008154650

PATIENT
  Age: 44 Year
  Sex: Female
  Weight: 68.027 kg

DRUGS (3)
  1. XANAX [Suspect]
     Dosage: UNK
  2. ATIVAN [Suspect]
     Dosage: UNK
  3. ETHYL ALCOHOL [Suspect]
     Dosage: DAILY
     Route: 048
     Dates: start: 20071202

REACTIONS (2)
  - INCORRECT ROUTE OF DRUG ADMINISTRATION [None]
  - STUPOR [None]
